FAERS Safety Report 10266343 (Version 1)
Quarter: 2014Q2

REPORT INFORMATION
  Report Type: Spontaneous
  Country: US (occurrence: None)
  Receive Date: 20140625
  Receipt Date: 20140625
  Transmission Date: 20141212
  Serious: No
  Sender: FDA-Public Use
  Company Number: None

PATIENT
  Age: 68 Year
  Sex: Female
  Weight: 93.9 kg

DRUGS (7)
  1. MYRBETRIQ [Suspect]
     Indication: BLADDER SPASM
     Dosage: 25 MG, 1 PILL DAILY, ONCE A DAY, BY MOUTH
     Route: 048
     Dates: start: 20140407, end: 20140530
  2. ZOLOFT [Concomitant]
  3. VITAMIN D [Concomitant]
  4. B12 SHOTS [Concomitant]
  5. CITRICAL [Concomitant]
  6. SYNTHROID [Concomitant]
  7. OMEPRAZOLE [Concomitant]

REACTIONS (3)
  - Hunger [None]
  - Headache [None]
  - Muscle spasms [None]
